FAERS Safety Report 8525425-4 (Version None)
Quarter: 2012Q3

REPORT INFORMATION
  Report Type: 
  Country: None (occurrence: None)
  Receive Date: 20120720
  Receipt Date: 20120713
  Transmission Date: 20120928
  Serious: Yes (Other)
  Sender: FDA-Public Use
  Company Number: JP-ASTRAZENECA-2012SE31262

PATIENT
  Age: 61 Year
  Sex: Male

DRUGS (10)
  1. GASLON N [Concomitant]
     Indication: GASTRIC ULCER
     Route: 048
     Dates: start: 20110303
  2. MICARDIS [Concomitant]
     Indication: HYPERTENSION
     Route: 048
     Dates: start: 20101201
  3. FEBURIC [Concomitant]
     Indication: HYPERURICAEMIA
     Route: 048
     Dates: start: 20120308
  4. CRESTOR [Suspect]
     Indication: HYPERCHOLESTEROLAEMIA
     Route: 048
     Dates: start: 20120308, end: 20120423
  5. VITAMIN B12 [Concomitant]
     Indication: PERIARTHRITIS
     Route: 048
     Dates: start: 20070428
  6. JUVELA [Concomitant]
     Indication: PERIARTHRITIS
     Route: 048
     Dates: start: 20070428
  7. INDAPAMIDE [Concomitant]
     Indication: HYPERTENSION
     Route: 048
     Dates: start: 20120113
  8. RABEPRAZOLE SODIUM [Concomitant]
     Indication: GASTRIC ULCER
     Route: 048
     Dates: start: 20110303
  9. TIZANIDINE HYDROCHLORIDE [Concomitant]
     Indication: PERIARTHRITIS
     Route: 048
     Dates: start: 20070428
  10. ADALAT CC [Concomitant]
     Indication: HYPERTENSION
     Route: 048
     Dates: start: 20101201

REACTIONS (4)
  - ABDOMINAL PAIN LOWER [None]
  - INTENTIONAL DRUG MISUSE [None]
  - RHABDOMYOLYSIS [None]
  - MYALGIA [None]
